FAERS Safety Report 5781794-X (Version None)
Quarter: 2008Q2

REPORT INFORMATION
  Report Type: 
  Country: None (occurrence: None)
  Receive Date: 20080623
  Receipt Date: 20070906
  Transmission Date: 20081010
  Serious: No
  Sender: FDA-Public Use
  Company Number: US-ASTRAZENECA-2007UW21176

PATIENT
  Age: 56 Year
  Sex: Female

DRUGS (4)
  1. RHINOCORT [Suspect]
     Indication: SINUSITIS
     Route: 045
     Dates: start: 20070827
  2. AMOXICILLIN [Concomitant]
  3. MANGANESE [Concomitant]
  4. VITAMINS [Concomitant]

REACTIONS (6)
  - DRUG INEFFECTIVE FOR UNAPPROVED INDICATION [None]
  - EYE PAIN [None]
  - FACIAL PAIN [None]
  - HEADACHE [None]
  - NAUSEA [None]
  - VERTIGO [None]
